FAERS Safety Report 6711436-8 (Version None)
Quarter: 2010Q2

REPORT INFORMATION
  Report Type: 
  Country: None (occurrence: None)
  Receive Date: 20100505
  Receipt Date: 20100429
  Transmission Date: 20101027
  Serious: Yes (Other)
  Sender: FDA-Public Use
  Company Number: US-PFIZER INC-2010055170

PATIENT
  Sex: Female
  Weight: 81.633 kg

DRUGS (4)
  1. TOVIAZ [Suspect]
     Indication: INCONTINENCE
     Dosage: 4 MG, UNK
     Route: 048
     Dates: start: 20090101
  2. TOVIAZ [Suspect]
     Dosage: 8 MG, UNK
     Dates: start: 20100428
  3. CELEBREX [Concomitant]
     Indication: BACK PAIN
     Dosage: 200 MG, AS NEEDED
     Dates: start: 20070101
  4. LEVOXYL [Concomitant]
     Indication: HYPOTHYROIDISM
     Dosage: 50 UG, 1X/DAY
     Dates: start: 20000101

REACTIONS (5)
  - DIARRHOEA [None]
  - DRUG INEFFECTIVE [None]
  - INSOMNIA [None]
  - MUSCULOSKELETAL STIFFNESS [None]
  - NECK PAIN [None]
